FAERS Safety Report 11221617 (Version 2)
Quarter: 2015Q2

REPORT INFORMATION
  Report Type: Spontaneous
  Country: BR (occurrence: BR)
  Receive Date: 20150626
  Receipt Date: 20150630
  Transmission Date: 20150821
  Serious: Yes (Other)
  Sender: FDA-Public Use
  Company Number: BR-BAYER-2015-364356

PATIENT
  Age: 28 Year
  Sex: Female

DRUGS (1)
  1. QLAIRA [Suspect]
     Active Substance: DIENOGEST\ESTRADIOL VALERATE
     Indication: CONTRACEPTION
     Dosage: UNK
     Route: 048
     Dates: start: 20150622

REACTIONS (3)
  - Head discomfort [None]
  - Memory impairment [None]
  - Dizziness [None]

NARRATIVE: CASE EVENT DATE: 20150622
